FAERS Safety Report 5355107-1 (Version None)
Quarter: 2007Q2

REPORT INFORMATION
  Report Type: 
  Country: None (occurrence: None)
  Receive Date: 20070613
  Receipt Date: 20070605
  Transmission Date: 20071010
  Serious: Yes (Other)
  Sender: FDA-Public Use
  Company Number: PHFR2007GB01814

PATIENT
  Age: 8 Year
  Sex: Male

DRUGS (1)
  1. METHYLPHENIDATE HCL [Suspect]
     Indication: ATTENTION DEFICIT/HYPERACTIVITY DISORDER
     Dosage: 5 MG, ONCE/SINGLE
     Route: 048
     Dates: start: 20070516, end: 20070516

REACTIONS (1)
  - BLISTER [None]
